FAERS Safety Report 16018624 (Version 2)
Quarter: 2019Q1

REPORT INFORMATION
  Report Type: Spontaneous
  Country: US (occurrence: US)
  Receive Date: 20190228
  Receipt Date: 20190306
  Transmission Date: 20190418
  Serious: No
  Sender: FDA-Public Use
  Company Number: US-ALEXION PHARMACEUTICALS INC.-A201902859

PATIENT
  Sex: Female

DRUGS (2)
  1. SOLIRIS [Suspect]
     Active Substance: ECULIZUMAB
     Dosage: UNK
     Route: 042
  2. SOLIRIS [Suspect]
     Active Substance: ECULIZUMAB
     Indication: MYASTHENIA GRAVIS
     Dosage: UNK, EVERY WEEK OR WEEKLY
     Route: 058

REACTIONS (7)
  - Headache [Unknown]
  - Joint swelling [Unknown]
  - Abdominal distension [Unknown]
  - Incorrect route of product administration [Unknown]
  - Fluid retention [Unknown]
  - Abdominal pain upper [Unknown]
  - Back pain [Unknown]
